FAERS Safety Report 4519315-1 (Version None)
Quarter: 2004Q4

REPORT INFORMATION
  Report Type: 
  Country: None (occurrence: None)
  Receive Date: 20041123
  Receipt Date: 20041108
  Transmission Date: 20050328
  Serious: Yes (Death)
  Sender: FDA-Public Use
  Company Number: HQWYE757714OCT04

PATIENT
  Age: 57 Year
  Sex: Male

DRUGS (8)
  1. NEUMEGA [Suspect]
     Dosage: 50 MICROGRAMS/KG/DAY X3 DOSES, SUBCUTANEOUS
     Route: 058
     Dates: start: 20040925, end: 20040927
  2. IFOSFAMIDE [Concomitant]
  3. CYTARABINE [Concomitant]
  4. ETOPOSIDE [Concomitant]
  5. NEULASTA [Concomitant]
  6. MESNA [Concomitant]
  7. MESNA [Concomitant]
  8. ARANESP [Concomitant]

REACTIONS (3)
  - ALBUMIN GLOBULIN RATIO DECREASED [None]
  - ANION GAP DECREASED [None]
  - SUDDEN CARDIAC DEATH [None]
